FAERS Safety Report 19407650 (Version 1)
Quarter: 2021Q2

REPORT INFORMATION
  Report Type: Not Available
  Country: US (occurrence: None)
  Receive Date: 20210611
  Receipt Date: 20210611
  Transmission Date: 20210717
  Serious: No
  Sender: FDA-Public Use
  Company Number: US-AKORN-167551

PATIENT
  Sex: Male

DRUGS (1)
  1. LOTEPREDNOL ELABONATE OPHTHALMIC GEL [Suspect]
     Active Substance: LOTEPREDNOL ETABONATE

REACTIONS (1)
  - Corneal infiltrates [Recovered/Resolved]
